FAERS Safety Report 9602455 (Version 4)
Quarter: 2013Q4

REPORT INFORMATION
  Report Type: Spontaneous
  Country: US (occurrence: US)
  Receive Date: 20131007
  Receipt Date: 20131111
  Transmission Date: 20140711
  Serious: Yes (Hospitalization)
  Sender: FDA-Public Use
  Company Number: US-DENDREON CORPORATION-2013PROUSA03189

PATIENT
  Age: 64 Year
  Sex: Male
  Weight: 93.3 kg

DRUGS (12)
  1. PROVENGE [Suspect]
     Indication: PROSTATE CANCER METASTATIC
     Dosage: 250 ML, SINGLE
     Route: 042
     Dates: start: 20130909, end: 20130909
  2. PROVENGE [Suspect]
     Dosage: 250 ML, SINGLE
     Route: 042
     Dates: start: 20130923, end: 20130923
  3. COREG [Concomitant]
  4. VIT D3 [Concomitant]
  5. CALCIUM +D [Concomitant]
  6. IRON NATURE MADE [Concomitant]
  7. FLOMAX [Concomitant]
  8. LANTUS [Concomitant]
  9. LOVENOX [Concomitant]
  10. NOVOLOG [Concomitant]
  11. PRILOSEC [Concomitant]
  12. PRAVACHOL [Concomitant]

REACTIONS (2)
  - Bacteraemia [Recovered/Resolved]
  - Culture positive [Unknown]
